FAERS Safety Report 6269130-6 (Version None)
Quarter: 2009Q3

REPORT INFORMATION
  Report Type: 
  Country: None (occurrence: None)
  Receive Date: 20090706
  Receipt Date: 20090624
  Transmission Date: 20100115
  Serious: Yes (Hospitalization)
  Sender: FDA-Public Use
  Company Number: 200914614

PATIENT
  Sex: Female

DRUGS (5)
  1. SANDOGLOBULIN [Suspect]
     Indication: MULTIPLE MYELOMA
     Dosage: 12 G, 12 G / DAY INTRAVENOUS (NOT OTHERWISE SPECIFIED)
     Route: 042
     Dates: start: 20090106, end: 20090106
  2. LEVOFLOXACIN [Concomitant]
  3. AUGMENTIN [Concomitant]
  4. SINTROM [Concomitant]
  5. NEXIUM [Concomitant]

REACTIONS (10)
  - CHILLS [None]
  - DRUG HYPERSENSITIVITY [None]
  - DYSPNOEA [None]
  - ELECTROCARDIOGRAM REPOLARISATION ABNORMALITY [None]
  - ELECTROCARDIOGRAM T WAVE INVERSION [None]
  - HYPOTENSION [None]
  - LARYNGOSPASM [None]
  - OXYGEN SATURATION DECREASED [None]
  - PERICARDIAL EFFUSION [None]
  - SINUS TACHYCARDIA [None]
